FAERS Safety Report 15495047 (Version 1)
Quarter: 2018Q4

REPORT INFORMATION
  Report Type: Spontaneous
  Country: RS (occurrence: RS)
  Receive Date: 20181012
  Receipt Date: 20181012
  Transmission Date: 20190205
  Serious: Yes (Other)
  Sender: FDA-Public Use
  Company Number: RS-GLAXOSMITHKLINE-RS2016200571

PATIENT
  Age: 55 Year
  Sex: Male

DRUGS (1)
  1. DICLOFENAC [Suspect]
     Active Substance: DICLOFENAC
     Indication: ISCHAEMIC LIMB PAIN
     Dosage: UNK
     Route: 065

REACTIONS (3)
  - Colitis [Recovering/Resolving]
  - Large intestinal stenosis [Unknown]
  - Diarrhoea [Recovered/Resolved]
